FAERS Safety Report 6912973-3 (Version None)
Quarter: 2010Q3

REPORT INFORMATION
  Report Type: 
  Country: None (occurrence: None)
  Receive Date: 20100806
  Receipt Date: 20090503
  Transmission Date: 20110219
  Serious: No
  Sender: FDA-Public Use
  Company Number: US-PFIZER INC-2009188253

PATIENT

DRUGS (3)
  1. VFEND [Suspect]
     Indication: CANDIDIASIS
     Dosage: UNK
     Dates: start: 20090320
  2. DIFLUCAN [Suspect]
     Indication: CANDIDIASIS
     Dosage: UNK
  3. NYSTATIN [Concomitant]

REACTIONS (1)
  - DRUG INEFFECTIVE [None]
